FAERS Safety Report 4455653-9 (Version None)
Quarter: 2004Q3

REPORT INFORMATION
  Report Type: 
  Country: None (occurrence: None)
  Receive Date: 20040917
  Receipt Date: 20040831
  Transmission Date: 20050211
  Serious: Yes (Life-Threatening, Hospitalization)
  Sender: FDA-Public Use
  Company Number: 2004AP04093

PATIENT
  Age: 28 Year
  Sex: Male
  Weight: 87 kg

DRUGS (5)
  1. SEROQUEL [Suspect]
     Indication: SCHIZOPHRENIA
     Dosage: 100 MG TID PO
     Route: 048
     Dates: start: 20040625, end: 20040629
  2. SEROQUEL [Suspect]
     Indication: SCHIZOPHRENIA
     Dosage: 600 MG DAILY PO
     Route: 048
     Dates: start: 20040630, end: 20040712
  3. PL GRAN. [Suspect]
     Indication: NASOPHARYNGITIS
     Dosage: 1 G TID PO
     Route: 048
     Dates: start: 20040701, end: 20040704
  4. CEFZON [Suspect]
     Indication: BRONCHITIS ACUTE
     Dosage: 100 MG TID PO
     Route: 048
     Dates: start: 20040702, end: 20040704
  5. HIRNAMIN [Concomitant]

REACTIONS (9)
  - ALANINE AMINOTRANSFERASE INCREASED [None]
  - ANOREXIA [None]
  - ASPARTATE AMINOTRANSFERASE INCREASED [None]
  - BLOOD LACTATE DEHYDROGENASE INCREASED [None]
  - BRONCHITIS ACUTE [None]
  - EOSINOPHILIC PNEUMONIA [None]
  - GAMMA-GLUTAMYLTRANSFERASE INCREASED [None]
  - PNEUMONIA MYCOPLASMAL [None]
  - THERAPY NON-RESPONDER [None]
